FAERS Safety Report 7250979-8 (Version None)
Quarter: 2011Q1

REPORT INFORMATION
  Report Type: 
  Country: None (occurrence: None)
  Receive Date: 20110128
  Receipt Date: 20110118
  Transmission Date: 20110831
  Serious: Yes (Hospitalization)
  Sender: FDA-Public Use
  Company Number: B0641975A

PATIENT
  Sex: Female
  Weight: 62 kg

DRUGS (13)
  1. RAMIPRIL [Concomitant]
     Indication: HYPERTENSION
     Dosage: 2.5MG AS REQUIRED
     Dates: start: 20090506
  2. OXALIPLATIN [Suspect]
     Dates: start: 20100224, end: 20100224
  3. 5-FU [Suspect]
     Dates: start: 20100217, end: 20100303
  4. METOPROLOL [Concomitant]
     Indication: HYPERTENSION
     Dosage: 95MG TWICE PER DAY
  5. LOPERAMIDE [Concomitant]
     Dosage: 2MG AS REQUIRED
     Dates: start: 20090715
  6. PANTOZOL [Concomitant]
     Indication: PROPHYLAXIS
     Dosage: 40MG PER DAY
     Dates: start: 20090506
  7. ACTRAPID [Concomitant]
  8. LAPATINIB [Suspect]
     Dates: start: 20100217, end: 20100309
  9. CREON [Concomitant]
     Indication: PANCREATIC INSUFFICIENCY
     Dosage: 25000MG SIX TIMES PER DAY
     Dates: start: 20090506
  10. FOLINIC ACID [Suspect]
     Dates: start: 20100217, end: 20100303
  11. ASPIRIN [Concomitant]
  12. PREDNISOLONE [Concomitant]
     Indication: RHEUMATOID ARTHRITIS
     Dosage: 7MG PER DAY
     Dates: start: 20090325
  13. LANTUS [Concomitant]

REACTIONS (3)
  - MUSCULAR WEAKNESS [None]
  - CEREBRAL ISCHAEMIA [None]
  - DYSARTHRIA [None]
